FAERS Safety Report 5401711-1 (Version None)
Quarter: 2007Q3

REPORT INFORMATION
  Report Type: 
  Country: None (occurrence: None)
  Receive Date: 20070731
  Receipt Date: 20070718
  Transmission Date: 20080115
  Serious: No
  Sender: FDA-Public Use
  Company Number: CA-ELI_LILLY_AND_COMPANY-CA200706004911

PATIENT
  Age: 52 Year
  Sex: Female
  Weight: 37.641 kg

DRUGS (10)
  1. FORTEO [Suspect]
     Indication: OSTEOPOROSIS
     Dosage: 20 UG, DAILY (1/D)
     Route: 058
     Dates: start: 20070322
  2. CALTRATE [Concomitant]
  3. LOSEC [Concomitant]
  4. PALAFER [Concomitant]
  5. DETROL [Concomitant]
  6. TYLENOL W/ CODEINE NO. 3 [Concomitant]
  7. IMOVANE [Concomitant]
  8. SILICEA [Concomitant]
  9. FISH OIL [Concomitant]
  10. PERINDOPRIL ERBUMINE [Concomitant]

REACTIONS (4)
  - HAEMOGLOBIN DECREASED [None]
  - MUSCLE ENZYME INCREASED [None]
  - MUSCULAR WEAKNESS [None]
  - OEDEMA PERIPHERAL [None]
